FAERS Safety Report 7884715-9 (Version None)
Quarter: 2011Q4

REPORT INFORMATION
  Report Type: 
  Country: None (occurrence: None)
  Receive Date: 20111102
  Receipt Date: 20111025
  Transmission Date: 20120403
  Serious: Yes (Hospitalization)
  Sender: FDA-Public Use
  Company Number: NO-US-EMD SERONO, INC.-7093018

PATIENT
  Sex: Female

DRUGS (2)
  1. REBIF [Suspect]
     Indication: MULTIPLE SCLEROSIS
     Route: 058
  2. ANTIHISTAMINE [Concomitant]

REACTIONS (8)
  - HYPOAESTHESIA [None]
  - MUSCLE SPASTICITY [None]
  - PAIN IN JAW [None]
  - VISION BLURRED [None]
  - PAIN [None]
  - VISUAL FIELD DEFECT [None]
  - INJECTION SITE PAIN [None]
  - MIGRAINE [None]
